FAERS Safety Report 9537778 (Version 5)
Quarter: 2014Q2

REPORT INFORMATION
  Report Type: Report from Study
  Country: ES (occurrence: ES)
  Receive Date: 20130919
  Receipt Date: 20140403
  Transmission Date: 20141212
  Serious: Yes (Hospitalization)
  Sender: FDA-Public Use
  Company Number: ES-ROCHE-1268190

PATIENT
  Age: 63 Year
  Sex: Female

DRUGS (13)
  1. RO 5479599 (ANTI-HER3 MAB) [Suspect]
     Indication: BREAST CANCER
     Dosage: LAST DOSE PRIOR TO SAE: 07/AUG/2013,
     Route: 042
     Dates: start: 20130807, end: 20130828
  2. PERTUZUMAB [Suspect]
     Indication: BREAST CANCER
     Dosage: LAST DOSE PRIOR TO SAE: 06/AUG/2013
     Route: 042
     Dates: start: 20130806, end: 20130828
  3. PACLITAXEL [Suspect]
     Indication: BREAST CANCER
     Dosage: LAST DOSE PRIOR TO SAE: 20/AUG/2013
     Route: 042
     Dates: start: 20130806, end: 20130828
  4. EUTIROX [Concomitant]
     Route: 065
     Dates: start: 2001
  5. SIMVASTATIN [Concomitant]
     Route: 065
     Dates: start: 1993
  6. ZOPICLONE [Concomitant]
     Route: 065
     Dates: start: 1995
  7. OMEPRAZOLE [Concomitant]
     Route: 065
     Dates: start: 20130906, end: 20130911
  8. PANTOPRAZOLE [Concomitant]
     Route: 065
     Dates: start: 20130828, end: 20130905
  9. PANTOPRAZOLE [Concomitant]
     Route: 065
     Dates: start: 20130912, end: 20130912
  10. PARACETAMOL [Concomitant]
     Route: 065
     Dates: start: 20130917
  11. CEFAZOLIN [Concomitant]
     Route: 065
     Dates: start: 20130808, end: 20130808
  12. BETAMETHASONE [Concomitant]
     Route: 065
     Dates: start: 20130826, end: 20130906
  13. ATORVASTATIN [Concomitant]
     Route: 065
     Dates: start: 20130828, end: 20130919

REACTIONS (2)
  - Diarrhoea [Not Recovered/Not Resolved]
  - Hypomagnesaemia [Recovered/Resolved]
